FAERS Safety Report 20288923 (Version 1)
Quarter: 2022Q1

REPORT INFORMATION
  Report Type: Spontaneous
  Country: US (occurrence: US)
  Receive Date: 20220104
  Receipt Date: 20220104
  Transmission Date: 20220423
  Serious: Yes (Other)
  Sender: FDA-Public Use
  Company Number: US-AMGEN-USASP2021208380

PATIENT

DRUGS (4)
  1. FILGRASTIM [Suspect]
     Active Substance: FILGRASTIM
     Indication: Haematopoietic stem cell mobilisation
     Dosage: 10 MILLIGRAM/KILOGRAM, QD
     Route: 065
  2. ETOPOSIDE [Concomitant]
     Active Substance: ETOPOSIDE
     Indication: Haematopoietic stem cell mobilisation
  3. CYTARABINE [Concomitant]
     Active Substance: CYTARABINE
     Indication: Haematopoietic stem cell mobilisation
  4. MELPHALAN [Concomitant]
     Active Substance: MELPHALAN
     Indication: Haematopoietic stem cell mobilisation

REACTIONS (1)
  - Acute lymphocytic leukaemia recurrent [Unknown]
